FAERS Safety Report 18794272 (Version 1)
Quarter: 2021Q1

REPORT INFORMATION
  Report Type: Other
  Country: ES (occurrence: ES)
  Receive Date: 20210127
  Receipt Date: 20210127
  Transmission Date: 20210419
  Serious: Yes (Hospitalization, Other)
  Sender: FDA-Public Use
  Company Number: ES-DEXPHARM-20210020

PATIENT
  Age: 84 Year
  Sex: Male

DRUGS (2)
  1. AQUEOUS CHLORHEXIDINE 2% [Suspect]
     Active Substance: CHLORHEXIDINE ACETATE
  2. CEFUROXIME. [Concomitant]
     Active Substance: CEFUROXIME
     Indication: ANTIBIOTIC PROPHYLAXIS

REACTIONS (1)
  - Serratia infection [Recovered/Resolved]
